FAERS Safety Report 23967596 (Version 2)
Quarter: 2025Q2

REPORT INFORMATION
  Report Type: Spontaneous
  Country: CN (occurrence: CN)
  Receive Date: 20240612
  Receipt Date: 20250608
  Transmission Date: 20250716
  Serious: Yes (Hospitalization)
  Sender: COHERUS
  Company Number: CN-SHANGHAI JUNSHI BIOSCIENCES CO., LTD.-CN2024010238

PATIENT

DRUGS (4)
  1. TORIPALIMAB [Suspect]
     Active Substance: TORIPALIMAB
     Indication: Tongue cancer recurrent
     Route: 041
     Dates: start: 20240225, end: 20240225
  2. DOCETAXEL [Suspect]
     Active Substance: DOCETAXEL
     Indication: Tongue cancer recurrent
     Route: 041
     Dates: start: 20240224, end: 20240225
  3. CISPLATIN [Suspect]
     Active Substance: CISPLATIN
     Indication: Tongue cancer recurrent
     Route: 041
     Dates: start: 20240224, end: 20240225
  4. ERBITUX [Suspect]
     Active Substance: CETUXIMAB
     Indication: Tongue cancer recurrent
     Route: 041
     Dates: start: 20240223, end: 20240225

REACTIONS (2)
  - Myelosuppression [Recovering/Resolving]
  - Off label use [Unknown]

NARRATIVE: CASE EVENT DATE: 20240225
